FAERS Safety Report 7706377-3 (Version None)
Quarter: 2011Q3

REPORT INFORMATION
  Report Type: 
  Country: None (occurrence: None)
  Receive Date: 20110824
  Receipt Date: 20110819
  Transmission Date: 20111222
  Serious: Yes (Other)
  Sender: FDA-Public Use
  Company Number: US-PFIZER INC-2011192567

PATIENT
  Sex: Male
  Weight: 116.1 kg

DRUGS (4)
  1. GEOCILLIN [Suspect]
     Dosage: UNK
     Route: 048
     Dates: start: 20090101
  2. GEOCILLIN [Suspect]
     Indication: PROSTATITIS
     Dosage: 382 MG, 4X/DAY
     Route: 048
     Dates: start: 20060101, end: 20060101
  3. ENALAPRIL [Concomitant]
     Indication: HYPERTENSION
     Dosage: 10 MG
  4. LIPITOR [Concomitant]
     Indication: ILL-DEFINED DISORDER
     Dosage: 20 MG

REACTIONS (2)
  - PROSTATITIS [None]
  - THROMBOSIS [None]
